FAERS Safety Report 12084797 (Version 1)
Quarter: 2016Q1

REPORT INFORMATION
  Report Type: Report from Study
  Country: US (occurrence: US)
  Receive Date: 20160217
  Receipt Date: 20160217
  Transmission Date: 20160526
  Serious: Yes (Hospitalization)
  Sender: FDA-Public Use
  Company Number: US-JNJFOC-20160206234

PATIENT
  Sex: Female
  Weight: 58.97 kg

DRUGS (1)
  1. STELARA [Suspect]
     Active Substance: USTEKINUMAB
     Indication: PSORIASIS
     Route: 058

REACTIONS (3)
  - Staphylococcal infection [Not Recovered/Not Resolved]
  - Infected cyst [Unknown]
  - Arthropod bite [Recovered/Resolved]

NARRATIVE: CASE EVENT DATE: 201601
